FAERS Safety Report 7600592-5 (Version None)
Quarter: 2011Q3

REPORT INFORMATION
  Report Type: 
  Country: None (occurrence: None)
  Receive Date: 20110711
  Receipt Date: 20110706
  Transmission Date: 20111222
  Serious: Yes (Other)
  Sender: FDA-Public Use
  Company Number: BR-PFIZER INC-2011152481

PATIENT
  Sex: Female

DRUGS (1)
  1. EFFEXOR XR [Suspect]
     Indication: DEPRESSION
     Dosage: 37.5 MG (ONE CAPSULE), 1X/DAY
     Route: 048
     Dates: start: 20110401

REACTIONS (4)
  - FIBROMYALGIA [None]
  - CRYING [None]
  - PERSONALITY CHANGE [None]
  - SERUM SEROTONIN DECREASED [None]
